FAERS Safety Report 9201878 (Version 1)
Quarter: 2013Q1

REPORT INFORMATION
  Report Type: Spontaneous
  Country: DE (occurrence: None)
  Receive Date: 20130327
  Receipt Date: 20130327
  Transmission Date: 20140127
  Serious: No
  Sender: FDA-Public Use
  Company Number: TPA2013A02338

PATIENT
  Age: 45 Year
  Sex: Male

DRUGS (2)
  1. ADENURIC (FEBUXOSTAT) [Suspect]
     Indication: GOUT
     Route: 048
     Dates: start: 20121206, end: 20130312
  2. BISOPROLOL (BISOPROLOL) [Concomitant]

REACTIONS (2)
  - Angioedema [None]
  - Urticaria [None]
